FAERS Safety Report 18024739 (Version 1)
Quarter: 2020Q3

REPORT INFORMATION
  Report Type: Spontaneous
  Country: US (occurrence: US)
  Receive Date: 20200714
  Receipt Date: 20200714
  Transmission Date: 20201103
  Serious: Yes (Hospitalization)
  Sender: FDA-Public Use
  Company Number: None

PATIENT
  Age: 94 Year
  Sex: Male

DRUGS (1)
  1. APIXABAN (APIXABAN 2.5MG TAB) [Suspect]
     Active Substance: APIXABAN
     Indication: ATRIAL FIBRILLATION
     Dates: start: 20191218, end: 20191223

REACTIONS (8)
  - Blood pressure decreased [None]
  - Haematochezia [None]
  - Haematemesis [None]
  - Heart rate decreased [None]
  - Shock [None]
  - Upper gastrointestinal haemorrhage [None]
  - Gastrointestinal adenocarcinoma [None]
  - Gastric ulcer [None]

NARRATIVE: CASE EVENT DATE: 20191223
